FAERS Safety Report 25655083 (Version 2)
Quarter: 2025Q3

REPORT INFORMATION
  Report Type: Spontaneous
  Country: US (occurrence: US)
  Receive Date: 20250807
  Receipt Date: 20250915
  Transmission Date: 20251020
  Serious: No
  Sender: GLAUKOS
  Company Number: US-GLK-000664

PATIENT
  Age: 23 Year
  Sex: Female

DRUGS (5)
  1. PHOTREXA VISCOUS [Suspect]
     Active Substance: RIBOFLAVIN 5^-PHOSPHATE SODIUM
     Indication: Corneal disorder
     Route: 047
     Dates: start: 20250501, end: 20250501
  2. PHOTREXA [Suspect]
     Active Substance: RIBOFLAVIN 5^-PHOSPHATE SODIUM
     Indication: Corneal disorder
     Route: 047
     Dates: start: 20250501, end: 20250501
  3. FML [Concomitant]
     Active Substance: FLUOROMETHOLONE
     Indication: Product used for unknown indication
  4. CIPRO [Concomitant]
     Active Substance: CIPROFLOXACIN HYDROCHLORIDE
     Indication: Product used for unknown indication
  5. Ketorolac trimeth [Concomitant]
     Indication: Product used for unknown indication

REACTIONS (1)
  - Visual impairment [Unknown]

NARRATIVE: CASE EVENT DATE: 20250501
